FAERS Safety Report 23976224 (Version 1)
Quarter: 2024Q2

REPORT INFORMATION
  Report Type: Spontaneous
  Country: AU (occurrence: AU)
  Receive Date: 20240614
  Receipt Date: 20240614
  Transmission Date: 20240716
  Serious: Yes (Hospitalization, Other)
  Sender: FDA-Public Use
  Company Number: AU-GENERIC HEALTH PTY. LTD.-2023- 11310

PATIENT
  Age: 34 Year
  Sex: Male

DRUGS (6)
  1. CLOZAPINE [Suspect]
     Active Substance: CLOZAPINE
     Indication: Schizophrenia
     Dosage: UNK
     Route: 065
  2. VORICONAZOLE [Suspect]
     Active Substance: VORICONAZOLE
     Indication: Fungal infection
     Dosage: 12 MG/KG, QD
     Route: 048
  3. VORICONAZOLE [Suspect]
     Active Substance: VORICONAZOLE
     Indication: Product used for unknown indication
     Dosage: 8 MG/KG, QD
     Route: 048
  4. PIPERACILLIN SODIUM\TAZOBACTAM SODIUM [Concomitant]
     Active Substance: PIPERACILLIN SODIUM\TAZOBACTAM SODIUM
     Indication: Febrile neutropenia
     Dosage: UNK
     Route: 065
  5. PALIPERIDONE [Interacting]
     Active Substance: PALIPERIDONE
     Indication: Schizophrenia
     Dosage: 3 MG, QD
     Route: 065
  6. PALIPERIDONE [Interacting]
     Active Substance: PALIPERIDONE
     Indication: Product used for unknown indication
     Dosage: 9 MG, QD
     Route: 065

REACTIONS (5)
  - Drug interaction [Unknown]
  - Antipsychotic drug level increased [Recovered/Resolved]
  - Extrapyramidal disorder [Recovered/Resolved]
  - Febrile neutropenia [Recovering/Resolving]
  - Liver function test abnormal [Recovered/Resolved]
